FAERS Safety Report 6923254-6 (Version None)
Quarter: 2010Q3

REPORT INFORMATION
  Report Type: 
  Country: None (occurrence: None)
  Receive Date: 20100813
  Receipt Date: 20100805
  Transmission Date: 20110219
  Serious: Yes (Other)
  Sender: FDA-Public Use
  Company Number: US-JNJFOC-20100802995

PATIENT
  Sex: Female

DRUGS (12)
  1. DURAGESIC-100 [Suspect]
     Indication: BACK PAIN
     Route: 062
  2. DURAGESIC-100 [Suspect]
     Indication: SCIATICA
     Route: 062
  3. DURAGESIC-100 [Suspect]
     Route: 062
  4. DURAGESIC-100 [Suspect]
     Route: 062
  5. EFFEXOR XR [Concomitant]
     Indication: PAIN
     Route: 048
  6. EFFEXOR XR [Concomitant]
     Indication: DEPRESSION
     Route: 048
  7. CLONAZEPAM [Concomitant]
     Indication: ANXIETY
     Route: 048
  8. SKELAXIN [Concomitant]
     Indication: MUSCLE SPASMS
     Dosage: NIGHTLY AS NEEDED
     Route: 048
  9. VITAMIN TAB [Concomitant]
     Indication: NUTRITIONAL SUPPORT
     Route: 048
  10. LIDODERM [Concomitant]
     Indication: PAIN IN EXTREMITY
     Dosage: 12 HOURS ON THEN 12 HOURS OFF DAILY
     Route: 062
  11. LIDODERM [Concomitant]
     Indication: SCIATICA
     Dosage: 12 HOURS ON THEN 12 HOURS OFF DAILY
     Route: 062
  12. LIDODERM [Concomitant]
     Indication: BACK PAIN
     Dosage: 12 HOURS ON THEN 12 HOURS OFF DAILY
     Route: 062

REACTIONS (11)
  - ARTHRITIS [None]
  - BONE DISORDER [None]
  - CONNECTIVE TISSUE DISORDER [None]
  - DERMATITIS CONTACT [None]
  - FIBROMYALGIA [None]
  - HYPERHIDROSIS [None]
  - PAIN [None]
  - PRODUCT ADHESION ISSUE [None]
  - PRODUCT QUALITY ISSUE [None]
  - RESTLESS LEGS SYNDROME [None]
  - WRONG TECHNIQUE IN DRUG USAGE PROCESS [None]
